FAERS Safety Report 11048386 (Version 1)
Quarter: 2015Q2

REPORT INFORMATION
  Report Type: Spontaneous
  Country: US (occurrence: US)
  Receive Date: 20150420
  Receipt Date: 20150420
  Transmission Date: 20150821
  Serious: No
  Sender: FDA-Public Use
  Company Number: US-BIOGENIDEC-2015BI042567

PATIENT
  Age: 54 Year
  Sex: Female

DRUGS (1)
  1. TECFIDERA [Suspect]
     Active Substance: DIMETHYL FUMARATE
     Indication: RELAPSING-REMITTING MULTIPLE SCLEROSIS
     Dates: start: 201204

REACTIONS (4)
  - Rash [Unknown]
  - Flushing [Unknown]
  - Sensation of blood flow [Unknown]
  - Skin discolouration [Unknown]

NARRATIVE: CASE EVENT DATE: 20150308
